APPROVED DRUG PRODUCT: AMIODARONE HYDROCHLORIDE
Active Ingredient: AMIODARONE HYDROCHLORIDE
Strength: 50MG/ML
Dosage Form/Route: INJECTABLE;INJECTION
Application: A077610 | Product #001 | TE Code: AP
Applicant: ACELLA PHARMACEUTICALS LLC
Approved: Oct 30, 2008 | RLD: No | RS: No | Type: RX